FAERS Safety Report 9014189 (Version 1)
Quarter: 2013Q1

REPORT INFORMATION
  Report Type: Spontaneous
  Country: GB (occurrence: GB)
  Receive Date: 20130115
  Receipt Date: 20130115
  Transmission Date: 20140127
  Serious: Yes (Other)
  Sender: FDA-Public Use
  Company Number: PHHY2013GB002669

PATIENT
  Age: 89 Year
  Sex: Female

DRUGS (8)
  1. DONEPEZIL HYDROCHLORIDE [Suspect]
     Indication: DEMENTIA ALZHEIMER^S TYPE
     Dosage: 5 MG, UNK
  2. DONEPEZIL HYDROCHLORIDE [Suspect]
     Dosage: 10 MG, UNK
     Dates: start: 20120713, end: 20120904
  3. ASPIRIN [Concomitant]
     Dosage: 75 MG, QD
  4. LOSARTAN [Concomitant]
     Dosage: 100 MG, QD
  5. QVAR [Concomitant]
     Dosage: 2 DF, BID
     Route: 055
  6. MOXONIDINE [Concomitant]
     Dosage: 200 MG, QD
  7. RISEDRONATE [Concomitant]
     Dosage: 35 MG, QW
  8. FUROSEMIDE [Concomitant]
     Dosage: 40 MG, QD

REACTIONS (5)
  - Delusion [Unknown]
  - Hypomania [Not Recovered/Not Resolved]
  - Inappropriate affect [Unknown]
  - Energy increased [Unknown]
  - Insomnia [Unknown]
